FAERS Safety Report 8555899-4 (Version None)
Quarter: 2012Q3

REPORT INFORMATION
  Report Type: 
  Country: None (occurrence: None)
  Receive Date: 20120801
  Receipt Date: 20120723
  Transmission Date: 20120928
  Serious: No
  Sender: FDA-Public Use
  Company Number: US-BIOGENIDEC-2012BI026593

PATIENT
  Sex: Female

DRUGS (6)
  1. AVONEX [Suspect]
     Route: 030
     Dates: start: 19981201
  2. AVONEX [Suspect]
     Route: 030
     Dates: start: 20030331, end: 20100618
  3. TYSABRI [Concomitant]
     Indication: MULTIPLE SCLEROSIS
     Route: 042
     Dates: start: 20110330, end: 20110928
  4. AVONEX [Suspect]
     Route: 030
     Dates: start: 20111228
  5. AVONEX [Suspect]
     Indication: MULTIPLE SCLEROSIS
     Route: 030
  6. TYSABRI [Concomitant]
     Route: 042
     Dates: start: 20100908, end: 20110302

REACTIONS (5)
  - TOOTH FRACTURE [None]
  - NASOPHARYNGITIS [None]
  - DENTAL CARIES [None]
  - PYREXIA [None]
  - TOOTH ABSCESS [None]
